FAERS Safety Report 4314749-2 (Version None)
Quarter: 2004Q1

REPORT INFORMATION
  Report Type: 
  Country: None (occurrence: None)
  Receive Date: 20040308
  Receipt Date: 20031023
  Transmission Date: 20041129
  Serious: Yes (Death)
  Sender: FDA-Public Use
  Company Number: BE-JNJFOC-20031005447

PATIENT
  Age: 51 Year
  Sex: Male

DRUGS (9)
  1. PREPULSID (CISAPRIDE) TABLETS [Suspect]
     Indication: DIABETIC GASTROPARESIS
     Dosage: 10 MG, 3 IN 1 DAY
     Dates: start: 20010814, end: 20030610
  2. ALLOPURINOL [Concomitant]
  3. LOSEC (OMEPRAZOLE) [Concomitant]
  4. DOVENT (DUOVENT) [Concomitant]
  5. LIPITOR [Concomitant]
  6. ZESTRIL [Concomitant]
  7. TILDIEM RETARD (DILTIAZEM HYDROCHLORIDE) [Concomitant]
  8. NEPRESOL (DIHYDRALAZINE SULFATE) [Concomitant]
  9. BUMETANIDE [Concomitant]

REACTIONS (7)
  - CEREBRAL HAEMORRHAGE [None]
  - CEREBROVASCULAR ACCIDENT [None]
  - COMA [None]
  - CONFUSIONAL STATE [None]
  - FLAT AFFECT [None]
  - HYPERTENSION [None]
  - LACUNAR INFARCTION [None]
